FAERS Safety Report 25057832 (Version 1)
Quarter: 2025Q1

REPORT INFORMATION
  Report Type: Spontaneous
  Country: US (occurrence: None)
  Receive Date: 20250307
  Receipt Date: 20250307
  Transmission Date: 20250409
  Serious: Yes (Hospitalization)
  Sender: FDA-CTU
  Company Number: None

PATIENT
  Sex: Female

DRUGS (1)
  1. TERIPARATIDE ACETATE [Suspect]
     Active Substance: TERIPARATIDE ACETATE
     Indication: Osteoporosis
     Dosage: 20MCG ONCE A DAY SUBCUTANEOUS
     Route: 058
     Dates: start: 202307

REACTIONS (5)
  - Palpitations [None]
  - Hypertension [None]
  - Back pain [None]
  - Anal incontinence [None]
  - Haemoptysis [None]
